FAERS Safety Report 8178117-8 (Version None)
Quarter: 2012Q1

REPORT INFORMATION
  Report Type: 
  Country: None (occurrence: None)
  Receive Date: 20120301
  Receipt Date: 20120227
  Transmission Date: 20120608
  Serious: Yes (Congenital Anomaly, Other)
  Sender: FDA-Public Use
  Company Number: US-TEVA-325018USA

PATIENT

DRUGS (3)
  1. LAMOTRIGINE [Suspect]
     Dosage: 150MG
     Route: 064
  2. PREGABALIN [Suspect]
     Dosage: 300MG AT LAST MENSTRUAL PERIOD
     Route: 064
  3. PREGABALIN [Suspect]
     Dosage: 200MG AT 15 WEEKS
     Route: 064

REACTIONS (3)
  - MULTIPLE CONGENITAL ABNORMALITIES [None]
  - MATERNAL DRUGS AFFECTING FOETUS [None]
  - MICROTIA [None]
